FAERS Safety Report 12276831 (Version 3)
Quarter: 2016Q2

REPORT INFORMATION
  Report Type: Spontaneous
  Country: US (occurrence: US)
  Receive Date: 20160418
  Receipt Date: 20160509
  Transmission Date: 20160815
  Serious: Yes (Other)
  Sender: FDA-Public Use
  Company Number: US-PFIZER INC-2016218366

PATIENT
  Age: 65 Year
  Sex: Female
  Weight: 72 kg

DRUGS (3)
  1. TIKOSYN [Suspect]
     Active Substance: DOFETILIDE
     Dosage: 250 UG, 2X/DAY
     Route: 048
     Dates: start: 2010
  2. CHLORTALIDONE [Suspect]
     Active Substance: CHLORTHALIDONE
     Dosage: 50 MG, UNK
     Dates: start: 200901, end: 201602
  3. TIKOSYN [Suspect]
     Active Substance: DOFETILIDE
     Indication: ATRIAL FIBRILLATION
     Dosage: 250 UG, 1X/DAY
     Route: 048
     Dates: start: 200211, end: 2010

REACTIONS (4)
  - Amoebic dysentery [Recovered/Resolved]
  - Nephrolithiasis [Recovering/Resolving]
  - Pulmonary hypertension [Not Recovered/Not Resolved]
  - Polycythaemia vera [Not Recovered/Not Resolved]

NARRATIVE: CASE EVENT DATE: 2014
